FAERS Safety Report 14677214 (Version 1)
Quarter: 2018Q1

REPORT INFORMATION
  Report Type: Spontaneous
  Country: US (occurrence: US)
  Receive Date: 20180323
  Receipt Date: 20180323
  Transmission Date: 20180509
  Serious: Yes (Life-Threatening, Disabling, Other)
  Sender: FDA-Public Use
  Company Number: None

PATIENT
  Age: 30 Year
  Sex: Female
  Weight: 59.85 kg

DRUGS (12)
  1. GABAPENTIN. [Concomitant]
     Active Substance: GABAPENTIN
  2. LUVOX [Concomitant]
     Active Substance: FLUVOXAMINE MALEATE
  3. METFORMIN [Concomitant]
     Active Substance: METFORMIN HYDROCHLORIDE
  4. MAGNESIUM STEARATE [Suspect]
     Active Substance: MAGNESIUM STEARATE
     Indication: AUTONOMIC FAILURE SYNDROME
     Dosage: ?          QUANTITY:1 TABLET(S);?
     Route: 048
     Dates: start: 20180323
  5. IBUPROFEN. [Concomitant]
     Active Substance: IBUPROFEN
  6. XANAX [Concomitant]
     Active Substance: ALPRAZOLAM
  7. SYMBICORT [Concomitant]
     Active Substance: BUDESONIDE\FORMOTEROL FUMARATE DIHYDRATE
  8. METHYLFOLATE [Concomitant]
     Active Substance: LEVOMEFOLATE CALCIUM
  9. METHYLCOBALAMIN. [Concomitant]
     Active Substance: METHYLCOBALAMIN
  10. MAGNESIUM STEARATE [Suspect]
     Active Substance: MAGNESIUM STEARATE
     Indication: PROLACTIN-PRODUCING PITUITARY TUMOUR
     Dosage: ?          OTHER FREQUENCY:2X WEEK;?
     Route: 048
  11. MIDODRINE [Concomitant]
     Active Substance: MIDODRINE
  12. ASTHMA RESCUE SPRAY [Concomitant]

REACTIONS (6)
  - Headache [None]
  - Palpitations [None]
  - Asthma [None]
  - Dyspnoea [None]
  - Peripheral swelling [None]
  - Product formulation issue [None]

NARRATIVE: CASE EVENT DATE: 20180323
